FAERS Safety Report 5285303-3 (Version None)
Quarter: 2007Q3

REPORT INFORMATION
  Report Type: 
  Country: None (occurrence: None)
  Receive Date: 20070403
  Receipt Date: 20070330
  Transmission Date: 20080115
  Serious: Yes (Other)
  Sender: FDA-Public Use
  Company Number: DE-ROXANE LABORATORIES, INC-2007-DE-01863DE

PATIENT
  Age: 26 Year
  Sex: Female
  Weight: 70 kg

DRUGS (5)
  1. BUSCOPAN PLUS [Suspect]
     Route: 048
  2. DICLOFENAC SODIUM [Suspect]
     Route: 048
  3. ACETAMINOPHEN [Suspect]
     Route: 048
  4. PREDNISOLONE [Suspect]
     Route: 048
  5. ACETAMINOPHEN W/ CODEINE [Suspect]
     Route: 048

REACTIONS (2)
  - DRUG ABUSER [None]
  - SUICIDE ATTEMPT [None]
